FAERS Safety Report 5030111-1 (Version None)
Quarter: 2006Q2

REPORT INFORMATION
  Report Type: 
  Country: None (occurrence: None)
  Receive Date: 20060614
  Receipt Date: 20060602
  Transmission Date: 20061013
  Serious: Yes (Hospitalization)
  Sender: FDA-Public Use
  Company Number: 2006071808

PATIENT
  Age: 61 Year
  Sex: Male

DRUGS (9)
  1. NORVASC [Suspect]
     Indication: ESSENTIAL HYPERTENSION
     Dosage: 5 MG (5 MG,QD), ORAL
     Route: 048
  2. RILMENIDINE (RILMENIDINE) [Suspect]
     Indication: ESSENTIAL HYPERTENSION
     Dosage: 1 MG (1 MG, QD), ORAL
     Route: 048
  3. SIROLIMUS (SIROLIMUS) [Suspect]
     Indication: RENAL TRANSPLANT
     Dosage: 2 MG (2 MG, QD), ORAL
  4. URAPIDIL (URAPIDIL) [Suspect]
     Indication: ESSENTIAL HYPERTENSION
     Dosage: 120 MG (60 MG, BID), ORAL
     Route: 048
  5. BROMAZEPAM (BROMAZEPAM) [Suspect]
     Indication: ANXIETY
     Dosage: 1 DOSE FORM (TID), ORAL
     Route: 048
     Dates: end: 20060410
  6. FUROSEMIDE [Suspect]
     Indication: ESSENTIAL HYPERTENSION
     Dosage: 500 MG (500 MG, DAILY), ORAL
     Route: 048
     Dates: end: 20060413
  7. CALCIUM CARBONATE/COLECALCIFEROL (CALCIUM CARBONATE, COLECALCIFEROL) [Concomitant]
  8. PAROXETINE HCL [Concomitant]
  9. ENOXAPARIN SODIUM [Concomitant]

REACTIONS (3)
  - DEPRESSION [None]
  - GENERAL PHYSICAL HEALTH DETERIORATION [None]
  - GUILLAIN-BARRE SYNDROME [None]
